FAERS Safety Report 16991547 (Version 1)
Quarter: 2019Q4

REPORT INFORMATION
  Report Type: Spontaneous
  Country: JP (occurrence: JP)
  Receive Date: 20191104
  Receipt Date: 20191104
  Transmission Date: 20200122
  Serious: Yes (Disabling)
  Sender: FDA-Public Use
  Company Number: JP-LUNDBECK-DKLU3006884

PATIENT
  Age: 80 Year

DRUGS (4)
  1. DOPS [Suspect]
     Active Substance: DROXIDOPA
     Indication: PRODUCT USED FOR UNKNOWN INDICATION
     Route: 065
  2. LEVODOPA [Concomitant]
     Active Substance: LEVODOPA
     Indication: PRODUCT USED FOR UNKNOWN INDICATION
     Route: 065
  3. NEUPRO [Suspect]
     Active Substance: ROTIGOTINE
     Route: 065
  4. NEUPRO [Suspect]
     Active Substance: ROTIGOTINE
     Indication: PARKINSON^S DISEASE
     Route: 062

REACTIONS (2)
  - Motor dysfunction [Unknown]
  - Posture abnormal [Unknown]
